FAERS Safety Report 13916152 (Version 1)
Quarter: 2017Q3

REPORT INFORMATION
  Report Type: Spontaneous
  Country: EC (occurrence: EC)
  Receive Date: 20170829
  Receipt Date: 20170829
  Transmission Date: 20171127
  Serious: Yes (Hospitalization, Other)
  Sender: FDA-Public Use
  Company Number: EC-APOTEX-2017AP017027

PATIENT
  Age: 52 Year
  Sex: Male

DRUGS (3)
  1. INSULIN ASPART [Suspect]
     Active Substance: INSULIN ASPART
     Indication: HYPERGLYCAEMIA
     Route: 065
  2. INSULIN GLARGINE [Suspect]
     Active Substance: INSULIN GLARGINE
     Indication: HYPERGLYCAEMIA
     Route: 065
  3. APO-METFORMINA [Suspect]
     Active Substance: METFORMIN HYDROCHLORIDE
     Indication: HYPERGLYCAEMIA
     Dosage: UNK
     Route: 065

REACTIONS (5)
  - Ischaemic stroke [Recovering/Resolving]
  - Treatment noncompliance [Unknown]
  - Hyperglycaemia [Recovering/Resolving]
  - Ballismus [Recovering/Resolving]
  - Chorea [Recovering/Resolving]
